FAERS Safety Report 17920540 (Version 1)
Quarter: 2020Q2

REPORT INFORMATION
  Report Type: Spontaneous
  Country: US (occurrence: US)
  Receive Date: 20200621
  Receipt Date: 20200621
  Transmission Date: 20200714
  Serious: No
  Sender: FDA-Public Use
  Company Number: US-GLAXOSMITHKLINE-US2020AMR104300

PATIENT
  Sex: Male
  Weight: 83.91 kg

DRUGS (5)
  1. OXYCODONE [Concomitant]
     Active Substance: OXYCODONE
     Indication: PAIN
     Dosage: 30 MG FIVE TIMES A DAY
     Route: 048
     Dates: start: 2013
  2. MORPHINE [Concomitant]
     Active Substance: MORPHINE
     Indication: NERVE INJURY
     Dosage: 30 MG (12 HOUR PILL), BID
     Route: 065
     Dates: start: 2020
  3. CHANTIX [Concomitant]
     Active Substance: VARENICLINE TARTRATE
     Dosage: 3 CONTINUOUS WEEKS OF 1 MG, 42 PILLS
     Route: 065
     Dates: start: 20200610
  4. BUPROPION. [Suspect]
     Active Substance: BUPROPION
     Indication: PRODUCT USED FOR UNKNOWN INDICATION
     Dosage: 150 MG
     Route: 065
  5. CHANTIX [Concomitant]
     Active Substance: VARENICLINE TARTRATE
     Indication: SMOKING CESSATION THERAPY
     Dosage: 5 MG, QD (11 PILLS, JUST TOOK THE LAST 5 MG DAILY)
     Route: 065
     Dates: start: 20200610

REACTIONS (1)
  - Malaise [Unknown]
